FAERS Safety Report 9689477 (Version 5)
Quarter: 2014Q1

REPORT INFORMATION
  Report Type: Spontaneous
  Country: AU (occurrence: AU)
  Receive Date: 20131114
  Receipt Date: 20140225
  Transmission Date: 20141002
  Serious: Yes (Other)
  Sender: FDA-Public Use
  Company Number: AU-ACORDA-ACO_38581_2013

PATIENT
  Age: 61 Year
  Sex: Female

DRUGS (3)
  1. FAMPYRA [Suspect]
     Indication: MULTIPLE SCLEROSIS
     Dosage: 10 MG, BID
     Route: 048
     Dates: start: 20120628, end: 201208
  2. FAMPYRA [Suspect]
     Dosage: 10 MG, BID
     Route: 048
     Dates: start: 20120928, end: 201304
  3. AVONEX [Concomitant]
     Indication: PRODUCT USED FOR UNKNOWN INDICATION
     Dosage: UNKNOWN
     Route: 065

REACTIONS (3)
  - Cystitis haemorrhagic [Not Recovered/Not Resolved]
  - Cystitis interstitial [Not Recovered/Not Resolved]
  - Urinary tract infection [Unknown]
